FAERS Safety Report 14488671 (Version 5)
Quarter: 2018Q2

REPORT INFORMATION
  Report Type: Spontaneous
  Country: US (occurrence: US)
  Receive Date: 20180205
  Receipt Date: 20180426
  Transmission Date: 20180711
  Serious: Yes (Hospitalization, Other)
  Sender: FDA-Public Use
  Company Number: US-ACTELION-A-NJ2017-159764

PATIENT
  Age: 64 Year
  Sex: Female
  Weight: 56.24 kg

DRUGS (9)
  1. UPTRAVI [Suspect]
     Active Substance: SELEXIPAG
     Dosage: 400 MCG, BID
     Route: 048
  2. ADEMPAS [Concomitant]
     Active Substance: RIOCIGUAT
     Dosage: UNK
     Route: 065
  3. UPTRAVI [Suspect]
     Active Substance: SELEXIPAG
     Dosage: 600 MCG, BID
     Route: 048
     Dates: start: 20170816
  4. LETAIRIS [Concomitant]
     Active Substance: AMBRISENTAN
  5. ELIQUIS [Concomitant]
     Active Substance: APIXABAN
  6. UPTRAVI [Suspect]
     Active Substance: SELEXIPAG
     Indication: PULMONARY ARTERIAL HYPERTENSION
     Dosage: 600 MCG, BID
     Route: 048
  7. ADEMPAS [Concomitant]
     Active Substance: RIOCIGUAT
     Dosage: 1 MG, TID
     Route: 065
     Dates: start: 20180201
  8. REVATIO [Concomitant]
     Active Substance: SILDENAFIL CITRATE
  9. TYVASO [Suspect]
     Active Substance: TREPROSTINIL
     Indication: PULMONARY ARTERIAL HYPERTENSION
     Dosage: 90 MCG, QID
     Route: 055
     Dates: start: 20141020

REACTIONS (20)
  - Nausea [Recovered/Resolved]
  - Abdominal distension [Recovered/Resolved]
  - Vision blurred [Unknown]
  - Headache [Recovered/Resolved]
  - Peripheral swelling [Recovered/Resolved]
  - Sinus disorder [Unknown]
  - Pulmonary arterial hypertension [Unknown]
  - Therapy cessation [Unknown]
  - Deafness [Unknown]
  - Vomiting [Unknown]
  - Diarrhoea [Unknown]
  - Malaise [Unknown]
  - Pain in jaw [Unknown]
  - Pain in extremity [Recovered/Resolved]
  - Fatigue [Unknown]
  - Ocular hyperaemia [Unknown]
  - Dyspnoea [Unknown]
  - Chest discomfort [Recovering/Resolving]
  - Cardiac failure [Unknown]
  - Dizziness [Unknown]

NARRATIVE: CASE EVENT DATE: 20180112
